FAERS Safety Report 14632159 (Version 2)
Quarter: 2018Q1

REPORT INFORMATION
  Report Type: Spontaneous
  Country: US (occurrence: US)
  Receive Date: 20180313
  Receipt Date: 20180328
  Transmission Date: 20180509
  Serious: Yes (Other)
  Sender: FDA-Public Use
  Company Number: US-AMGEN-USASP2018030859

PATIENT
  Age: 3 Year
  Sex: Female
  Weight: 17.1 kg

DRUGS (2)
  1. ENBREL [Suspect]
     Active Substance: ETANERCEPT
     Indication: JUVENILE IDIOPATHIC ARTHRITIS
     Dosage: 0.5 ML, QWK
     Route: 058
     Dates: start: 20170915
  2. ENBREL [Suspect]
     Active Substance: ETANERCEPT
     Dosage: 0.6 ML, QWK
     Route: 058

REACTIONS (3)
  - Off label use [Unknown]
  - Wrong technique in product usage process [Unknown]
  - Juvenile idiopathic arthritis [Unknown]
